FAERS Safety Report 11183260 (Version 1)
Quarter: 2015Q2

REPORT INFORMATION
  Report Type: Spontaneous
  Country: JP (occurrence: JP)
  Receive Date: 20150611
  Receipt Date: 20150611
  Transmission Date: 20150821
  Serious: Yes (Hospitalization)
  Sender: FDA-Public Use
  Company Number: PHHY2015JP066973

PATIENT
  Age: 60 Year
  Sex: Male

DRUGS (3)
  1. ASCORBIC ACID. [Suspect]
     Active Substance: ASCORBIC ACID
     Indication: IRRIGATION THERAPY
     Dosage: 4 MG/ML, UNK
     Route: 041
  2. UROKINASE [Suspect]
     Active Substance: UROKINASE
     Indication: IRRIGATION THERAPY
     Dosage: 120 IU/ML, UNK
     Route: 041
  3. LACTATED RINGERS [Suspect]
     Active Substance: CALCIUM CHLORIDE\POTASSIUM CHLORIDE\SODIUM CHLORIDE\SODIUM LACTATE
     Indication: IRRIGATION THERAPY
     Dosage: 500 ML, UNK
     Route: 041

REACTIONS (3)
  - Mydriasis [Unknown]
  - Depressed level of consciousness [Not Recovered/Not Resolved]
  - Intracranial hypotension [Unknown]
